FAERS Safety Report 22006894 (Version 1)
Quarter: 2023Q1

REPORT INFORMATION
  Report Type: Other
  Country: None (occurrence: IN)
  Receive Date: 20230217
  Receipt Date: 20230217
  Transmission Date: 20230418
  Serious: Yes (Other)
  Sender: FDA-Public Use
  Company Number: IN-BIOLOGICAL E. LTD-2138123

PATIENT
  Age: 27 Year
  Sex: Male

DRUGS (2)
  1. HEPARIN SODIUM [Suspect]
     Active Substance: HEPARIN SODIUM
     Indication: Deep vein thrombosis
     Route: 042
  2. UROKINASE [Suspect]
     Active Substance: UROKINASE
     Route: 042

REACTIONS (2)
  - Drug ineffective [Unknown]
  - Heparin-induced thrombocytopenia [Unknown]
